FAERS Safety Report 9179302 (Version 1)
Quarter: 2012Q4

REPORT INFORMATION
  Report Type: 
  Country: US (occurrence: US)
  Receive Date: 20121029
  Receipt Date: 20121029
  Transmission Date: 20130627
  Serious: No
  Sender: FDA-Public Use
  Company Number: US-AMGEN-USASP2012052614

PATIENT
  Age: 57 Year
  Sex: Male
  Weight: 99.77 kg

DRUGS (4)
  1. ENBREL [Suspect]
     Indication: RHEUMATOID ARTHRITIS
     Dosage: 25 mg, 2 times/wk
     Route: 058
  2. PENNSAID [Concomitant]
     Dosage: 1.5 %, UNK
  3. BENICAR [Concomitant]
     Dosage: 5 mg PO, UNK
     Route: 048
  4. TRAMADOL /00599202/ [Concomitant]
     Dosage: 300 mg ER PO, UNK
     Route: 048

REACTIONS (3)
  - Dry eye [Unknown]
  - Sinus congestion [Unknown]
  - Sinusitis [Unknown]
